FAERS Safety Report 7954434-9 (Version None)
Quarter: 2011Q4

REPORT INFORMATION
  Report Type: 
  Country: None (occurrence: None)
  Receive Date: 20111202
  Receipt Date: 20111201
  Transmission Date: 20120403
  Serious: Yes (Other)
  Sender: FDA-Public Use
  Company Number: RU-VIIV HEALTHCARE LIMITED-B0761413A

PATIENT
  Sex: Female

DRUGS (7)
  1. KALETRA [Suspect]
     Indication: HIV INFECTION
     Route: 048
     Dates: start: 20110725, end: 20110805
  2. REYATAZ [Concomitant]
     Indication: HIV INFECTION
     Route: 048
     Dates: start: 20110812, end: 20110816
  3. UNKNOWN MEDICATION [Concomitant]
     Dates: start: 20110725
  4. PHOSPHAZIDE [Concomitant]
     Indication: HIV INFECTION
     Route: 048
     Dates: start: 20110812, end: 20111012
  5. EPIVIR [Suspect]
     Indication: HIV INFECTION
     Route: 048
     Dates: start: 20110812, end: 20110816
  6. COMBIVIR [Suspect]
     Indication: HIV INFECTION
     Route: 048
     Dates: start: 20110725, end: 20110805
  7. ZIAGEN [Suspect]
     Indication: HIV INFECTION
     Route: 048
     Dates: start: 20110816, end: 20111012

REACTIONS (5)
  - HYPERAEMIA [None]
  - HYPERSENSITIVITY [None]
  - RASH GENERALISED [None]
  - MATERNAL EXPOSURE DURING PREGNANCY [None]
  - BODY TEMPERATURE INCREASED [None]
